FAERS Safety Report 9230384 (Version 2)
Quarter: 2013Q2

REPORT INFORMATION
  Report Type: Report from Study
  Country: DE (occurrence: DE)
  Receive Date: 20130415
  Receipt Date: 20130418
  Transmission Date: 20140414
  Serious: Yes (Other)
  Sender: FDA-Public Use
  Company Number: DE-B.I. PHARMACEUTICALS,INC./RIDGEFIELD-2013-DE-01057DE

PATIENT
  Sex: Female
  Weight: 75 kg

DRUGS (1)
  1. AGGRENOX [Suspect]
     Dosage: 15 ANZ
     Route: 048
     Dates: start: 20130406

REACTIONS (2)
  - Suicide attempt [Unknown]
  - Vomiting [Unknown]
